FAERS Safety Report 6115374-3 (Version None)
Quarter: 2009Q1

REPORT INFORMATION
  Report Type: 
  Country: None (occurrence: None)
  Receive Date: 20090313
  Receipt Date: 20090302
  Transmission Date: 20090719
  Serious: Yes (Hospitalization)
  Sender: FDA-Public Use
  Company Number: PHHY2009AR01656

PATIENT
  Age: 25 Year
  Sex: Female

DRUGS (1)
  1. BASOFORTINA [Suspect]
     Dosage: UNK
     Route: 048
     Dates: start: 20090105, end: 20090114

REACTIONS (7)
  - ANGIOPATHY [None]
  - APHASIA [None]
  - HEADACHE [None]
  - HEMIANOPIA [None]
  - HYPOTENSION [None]
  - PARAESTHESIA [None]
  - TRANSIENT ISCHAEMIC ATTACK [None]
